FAERS Safety Report 8637191 (Version 4)
Quarter: 2013Q4

REPORT INFORMATION
  Report Type: Spontaneous
  Country: US (occurrence: US)
  Receive Date: 20120627
  Receipt Date: 20131003
  Transmission Date: 20140711
  Serious: No
  Sender: FDA-Public Use
  Company Number: US-BIOGENIDEC-2012BI021764

PATIENT
  Age: 35 Year
  Sex: Female

DRUGS (1)
  1. TYSABRI [Suspect]
     Indication: MULTIPLE SCLEROSIS
     Route: 042
     Dates: start: 20120427

REACTIONS (8)
  - Vaginal discharge [Unknown]
  - Ovarian cyst [Unknown]
  - Depression [Not Recovered/Not Resolved]
  - Suicidal ideation [Recovered/Resolved]
  - Weight increased [Not Recovered/Not Resolved]
  - Dysmenorrhoea [Recovered/Resolved with Sequelae]
  - Drug ineffective [Unknown]
  - Fatigue [Not Recovered/Not Resolved]
